FAERS Safety Report 25465825 (Version 4)
Quarter: 2025Q3

REPORT INFORMATION
  Report Type: Spontaneous
  Country: BR (occurrence: BR)
  Receive Date: 20250623
  Receipt Date: 20250708
  Transmission Date: 20251020
  Serious: No
  Sender: NOVO NORDISK
  Company Number: BR-NOVOPROD-1451172

PATIENT
  Age: 686 Month
  Sex: Female
  Weight: 109 kg

DRUGS (4)
  1. RYBELSUS [Suspect]
     Active Substance: SEMAGLUTIDE
     Indication: Weight control
     Dosage: 3 MG, QD
  2. RYBELSUS [Suspect]
     Active Substance: SEMAGLUTIDE
     Indication: Thyroid disorder
  3. RYBELSUS [Suspect]
     Active Substance: SEMAGLUTIDE
     Indication: Weight control
  4. RYBELSUS [Suspect]
     Active Substance: SEMAGLUTIDE
     Indication: Thyroid disorder
     Dates: start: 20250526

REACTIONS (7)
  - Liver disorder [Recovered/Resolved]
  - Viral infection [Recovered/Resolved]
  - Back pain [Recovered/Resolved]
  - Vomiting [Recovered/Resolved]
  - Gastritis [Recovered/Resolved]
  - Drug titration error [Unknown]
  - Off label use [Unknown]

NARRATIVE: CASE EVENT DATE: 20250519
